FAERS Safety Report 9015785 (Version 1)
Quarter: 2013Q1

REPORT INFORMATION
  Report Type: Spontaneous
  Country: GB (occurrence: None)
  Receive Date: 20130103
  Receipt Date: 20130103
  Transmission Date: 20140127
  Serious: Yes (Hospitalization)
  Sender: FDA-Public Use
  Company Number: AUR-APL-2012-2012-05636

PATIENT
  Age: 74 Year
  Sex: Female

DRUGS (16)
  1. MIRTAZAPINE (MIRTAZAPINE) [Suspect]
     Indication: DEPRESSION
     Route: 048
  2. MIRTAZAPINE (MIRTAZAPINE) [Suspect]
     Indication: ANXIETY
     Route: 048
  3. SPIRONOLACTONE (SPIRONOLACTONE) [Concomitant]
  4. SERETIDE (SERETIDE) (01420901) [Concomitant]
  5. VENTOLIN (SALBUTAMOL) [Concomitant]
  6. RANITIDINE (RANITIDINE) [Concomitant]
  7. QUININE (QUININE) [Concomitant]
  8. MORPHINE [Concomitant]
  9. PARACETAMOL (PARACETAMOL) [Concomitant]
  10. ISOSORBIDE MONONITRATE (ISOSORBIDE MONONITRATE) [Concomitant]
  11. GLYCERYL TRINITRATE (CLYCERYL TRINITRATE) [Concomitant]
  12. GABAPENTIN (GABAPENTIN) [Concomitant]
  13. ACETYLSALICYLIC ACID (ACETYLSALICYLIC ACID) [Concomitant]
  14. ADCAL (CARBAZOCHROME) [Concomitant]
  15. AZETIMIBE (EZETIMIBE) [Concomitant]
  16. BISOPROLOL (BISOPROLOL) [Concomitant]

REACTIONS (2)
  - Restless legs syndrome [None]
  - Condition aggravated [None]
